FAERS Safety Report 24444646 (Version 1)
Quarter: 2024Q4

REPORT INFORMATION
  Report Type: Spontaneous
  Country: US (occurrence: None)
  Receive Date: 20241015
  Receipt Date: 20241015
  Transmission Date: 20250115
  Serious: Yes (Hospitalization)
  Sender: Public
  Company Number: None

PATIENT
  Age: 55 Year
  Sex: Male

DRUGS (1)
  1. VALPROIC ACID [Suspect]
     Active Substance: VALPROIC ACID
     Indication: Bipolar I disorder
     Dosage: FREQUENCY : 4 TIMES A DAY;?
     Route: 048
     Dates: start: 20220127

REACTIONS (1)
  - Pancreatitis [None]

NARRATIVE: CASE EVENT DATE: 20240520
